FAERS Safety Report 14192216 (Version 3)
Quarter: 2017Q4

REPORT INFORMATION
  Report Type: Spontaneous
  Country: GB (occurrence: GB)
  Receive Date: 20171115
  Receipt Date: 20171226
  Transmission Date: 20180321
  Serious: Yes (Other)
  Sender: FDA-Public Use
  Company Number: GB-MYLANLABS-2017M1071624

PATIENT
  Age: 43 Year
  Sex: Male

DRUGS (11)
  1. ONDANSETRON [Suspect]
     Active Substance: ONDANSETRON
     Indication: NAUSEA
  2. DEXAMETHASONE. [Suspect]
     Active Substance: DEXAMETHASONE
     Indication: NAUSEA
     Dosage: 5 DF, CYCLE (FOUR CYCLES PLANNED OF 21 DAYS EACH; ADMINISTERED ON DAYS 1-5 OF EACH CYCLE)
     Route: 065
     Dates: start: 20170815
  3. EMEND [Suspect]
     Active Substance: APREPITANT
     Indication: NAUSEA
     Dosage: 3 DF, CYCLE (FOUR CYCLES PLANNED OF 21 DAYS EACH; ADMINISTERED ON DAYS 1-3 OF EACH CYCLE)
     Route: 065
     Dates: start: 20170815
  4. DEXAMETHASONE. [Suspect]
     Active Substance: DEXAMETHASONE
     Indication: TESTICULAR GERM CELL CANCER METASTATIC
     Dosage: 3 DF, CYCLE (FOUR CYCLES PLANNED OF 21 DAYS EACH; ADMINISTERED ON DAYS 6-8 OF EACH CYCLE)
     Dates: start: 20170801
  5. ETOPOSIDE. [Suspect]
     Active Substance: ETOPOSIDE
     Indication: TESTICULAR GERM CELL CANCER METASTATIC
     Dosage: UNK
  6. ONDANSETRON [Suspect]
     Active Substance: ONDANSETRON
     Indication: TESTICULAR GERM CELL CANCER METASTATIC
     Dosage: 5 DF, CYCLE (FOUR CYCLES PLANNED OF 21 DAYS EACH; ADMINISTERED ON DAYS 1-5 OF EACH CYCLE)
     Dates: start: 20170815
  7. ZAPONEX [Suspect]
     Active Substance: CLOZAPINE
     Indication: SCHIZOPHRENIA
     Dosage: UNK
     Route: 048
     Dates: start: 20151103
  8. LIPEGFILGRASTIM [Suspect]
     Active Substance: LIPEGFILGRASTIM
     Indication: PRODUCT USED FOR UNKNOWN INDICATION
     Dosage: 1 DF, CYCLE (FOUR CYCLES PLANNED OF 21 DAYS EACH; ADMINISTERED ON DAY 6 OF EACH CYCLE (SINGLE DOSE)
     Dates: start: 20170820
  9. CISPLATIN. [Suspect]
     Active Substance: CISPLATIN
     Indication: TESTICULAR GERM CELL CANCER METASTATIC
     Dosage: UNK
  10. CISPLATIN. [Suspect]
     Active Substance: CISPLATIN
     Indication: SEMINOMA
     Dosage: 5 DF, CYCLE (FOUR CYCLES PLANNED OF 21 DAYS EACH; ADMINISTERED ON DAYS 1-5 OF EACH CYCLE)
     Route: 065
     Dates: start: 20170815
  11. ETOPOSIDE. [Suspect]
     Active Substance: ETOPOSIDE
     Indication: SEMINOMA
     Dosage: 5 DF, CYCLE (FOUR CYCLES PLANNED OF 21 DAYS EACH; ADMINISTERED ON DAYS 1-5 OF EACH CYCLE)
     Route: 065
     Dates: start: 20170815

REACTIONS (11)
  - Leukopenia [Recovered/Resolved]
  - Platelet count increased [Recovered/Resolved]
  - Neutrophil count decreased [Recovered/Resolved]
  - Contraindicated product administered [Not Recovered/Not Resolved]
  - Testicular germ cell cancer metastatic [Not Recovered/Not Resolved]
  - Leukopenia [Not Recovered/Not Resolved]
  - Neutropenia [Not Recovered/Not Resolved]
  - Thrombocytopenia [Recovered/Resolved]
  - Platelet count decreased [Recovered/Resolved]
  - Seminoma [Not Recovered/Not Resolved]
  - Platelet count increased [Recovered/Resolved]

NARRATIVE: CASE EVENT DATE: 20170620
